FAERS Safety Report 8224430-5 (Version None)
Quarter: 2012Q1

REPORT INFORMATION
  Report Type: 
  Country: None (occurrence: None)
  Receive Date: 20120321
  Receipt Date: 20120314
  Transmission Date: 20120608
  Serious: Yes (Other)
  Sender: FDA-Public Use
  Company Number: HU-UCBSA-053489

PATIENT
  Age: 58 Year
  Sex: Female
  Weight: 114 kg

DRUGS (3)
  1. CIMZIA [Suspect]
     Indication: RHEUMATOID ARTHRITIS
     Route: 058
  2. DIPROSALIC [Concomitant]
     Indication: PSORIASIS
     Route: 062
  3. ELOSALIC [Concomitant]
     Route: 062

REACTIONS (1)
  - PSORIASIS [None]
